FAERS Safety Report 5826967-2 (Version None)
Quarter: 2008Q3

REPORT INFORMATION
  Report Type: 
  Country: None (occurrence: None)
  Receive Date: 20080724
  Receipt Date: 20080709
  Transmission Date: 20090109
  Serious: Yes (Other)
  Sender: FDA-Public Use
  Company Number: 2008S1012105

PATIENT
  Age: 27 Year
  Sex: Male

DRUGS (7)
  1. MIRTAZAPINE [Suspect]
     Indication: DEPRESSION
  2. SUBUTEX [Suspect]
     Indication: DRUG DEPENDENCE
     Dosage: 24 MG; TWICE A DAY;, 8 MG; TWICE A DAY;
     Dates: start: 20060410, end: 20071201
  3. SUBUTEX [Suspect]
     Indication: DRUG WITHDRAWAL SYNDROME
     Dosage: 24 MG; TWICE A DAY;, 8 MG; TWICE A DAY;
     Dates: start: 20060410, end: 20071201
  4. SUBUTEX [Suspect]
     Indication: DRUG DEPENDENCE
     Dosage: 24 MG; TWICE A DAY;, 8 MG; TWICE A DAY;
     Dates: start: 20071101, end: 20071201
  5. SUBUTEX [Suspect]
     Indication: DRUG WITHDRAWAL SYNDROME
     Dosage: 24 MG; TWICE A DAY;, 8 MG; TWICE A DAY;
     Dates: start: 20071101, end: 20071201
  6. DIAMORPHINE [Concomitant]
  7. DIAZEPAM [Concomitant]

REACTIONS (6)
  - AGITATION [None]
  - LOGORRHOEA [None]
  - MANIA [None]
  - POOR QUALITY SLEEP [None]
  - PSYCHOMOTOR HYPERACTIVITY [None]
  - RESTLESSNESS [None]
